FAERS Safety Report 9122708 (Version 1)
Quarter: 2013Q1

REPORT INFORMATION
  Report Type: Spontaneous
  Country: US (occurrence: US)
  Receive Date: 20130115
  Receipt Date: 20130115
  Transmission Date: 20140127
  Serious: No
  Sender: FDA-Public Use
  Company Number: US-009507513-1301USA004544

PATIENT
  Age: 31 Year
  Sex: Female

DRUGS (3)
  1. FOLLISTIM [Suspect]
     Indication: OVULATION INDUCTION
     Dosage: UNK
     Dates: start: 20130105
  2. ASPIRIN [Concomitant]
  3. GONADOTROPIN, CHORIONIC [Concomitant]

REACTIONS (3)
  - Ovarian disorder [Unknown]
  - No therapeutic response [Unknown]
  - Maternal exposure during pregnancy [Unknown]
